FAERS Safety Report 12244434 (Version 1)
Quarter: 2016Q2

REPORT INFORMATION
  Report Type: Spontaneous
  Country: US (occurrence: US)
  Receive Date: 20160407
  Receipt Date: 20160407
  Transmission Date: 20160815
  Serious: No
  Sender: FDA-Public Use
  Company Number: US-009507513-1604USA002407

PATIENT
  Age: 61 Year
  Sex: Female
  Weight: 69.39 kg

DRUGS (5)
  1. BELSOMRA [Suspect]
     Active Substance: SUVOREXANT
     Dosage: 15 MG, ONCE NIGHT AT BEDTIME
     Route: 048
  2. BELSOMRA [Suspect]
     Active Substance: SUVOREXANT
     Dosage: 10 MG, ONCE NIGHT AT BEDTIME
     Route: 048
  3. HYDROCODONE [Concomitant]
     Active Substance: HYDROCODONE
  4. BELSOMRA [Suspect]
     Active Substance: SUVOREXANT
     Indication: SLEEP DISORDER
     Dosage: 5 MG, ONCE NIGHT AT BEDTIME
     Route: 048
  5. XANAX [Concomitant]
     Active Substance: ALPRAZOLAM

REACTIONS (1)
  - Drug ineffective [Unknown]
